FAERS Safety Report 8288867-0 (Version None)
Quarter: 2012Q2

REPORT INFORMATION
  Report Type: 
  Country: None (occurrence: None)
  Receive Date: 20120411
  Receipt Date: 20120330
  Transmission Date: 20120825
  Serious: Yes (Other)
  Sender: FDA-Public Use
  Company Number: JPI-P-020582

PATIENT
  Age: 76 Year
  Sex: Male

DRUGS (12)
  1. LISINOPRIL [Concomitant]
  2. FINASTERIDE [Concomitant]
  3. ATENOLOL AND CHLORTHALIDONE [Concomitant]
  4. XYREM [Suspect]
     Indication: NARCOLEPSY
     Dosage: 4.5 GM (2.25 GM, 2 IN 1 D), ORAL
     Route: 048
  5. HYDROCHLOROTHIAZIDE [Concomitant]
  6. SERTRALINE HYDROCHLORIDE [Concomitant]
  7. RANITIDINE HCL [Concomitant]
  8. POTASSIUM CHLORIDE [Concomitant]
  9. FUROSEMIDE [Concomitant]
  10. TAMSULOSIN HCL [Concomitant]
  11. SIMVASTATIN [Concomitant]
  12. ACETYLSALICYLIC ACID SRT [Concomitant]

REACTIONS (2)
  - HAEMOLYTIC ANAEMIA [None]
  - CHRONIC LYMPHOCYTIC LEUKAEMIA [None]
